FAERS Safety Report 6003019-2 (Version None)
Quarter: 2008Q4

REPORT INFORMATION
  Report Type: 
  Country: None (occurrence: None)
  Receive Date: 20081215
  Receipt Date: 20080616
  Transmission Date: 20090506
  Serious: No
  Sender: FDA-Public Use
  Company Number: US-AMGEN-KDL286357

PATIENT
  Sex: Female

DRUGS (9)
  1. ENBREL [Suspect]
     Indication: RHEUMATOID ARTHRITIS
     Route: 058
     Dates: start: 20060830
  2. ARAVA [Concomitant]
  3. CELEBREX [Concomitant]
  4. FLEXERIL [Concomitant]
  5. ALTACE [Concomitant]
  6. PAXIL [Concomitant]
  7. ESTRACE [Concomitant]
  8. MULTI-VITAMINS [Concomitant]
  9. ASPIRIN [Concomitant]

REACTIONS (1)
  - TOOTH ABSCESS [None]
